FAERS Safety Report 9916015 (Version 1)
Quarter: 2014Q1

REPORT INFORMATION
  Report Type: Spontaneous
  Country: US (occurrence: None)
  Receive Date: 20140219
  Receipt Date: 20140219
  Transmission Date: 20141002
  Serious: Yes (Other)
  Sender: FDA-Public Use
  Company Number: 201402015

PATIENT
  Sex: Male

DRUGS (1)
  1. TESTIM [Suspect]
     Route: 062

REACTIONS (2)
  - Lung neoplasm malignant [None]
  - Plasma cell myeloma [None]
